FAERS Safety Report 20165511 (Version 1)
Quarter: 2021Q4

REPORT INFORMATION
  Report Type: Spontaneous
  Country: US (occurrence: US)
  Receive Date: 20211209
  Receipt Date: 20211209
  Transmission Date: 20220303
  Serious: Yes (Other)
  Sender: FDA-Public Use
  Company Number: US-BAUSCH-BL-2021-039991

PATIENT
  Age: 70 Year
  Sex: Female

DRUGS (3)
  1. VYZULTA [Suspect]
     Active Substance: LATANOPROSTENE BUNOD
     Indication: Glaucoma
     Dosage: 1 DROP IN BOTH EYES ONCE DAILY
     Route: 047
     Dates: start: 202106
  2. VYZULTA [Suspect]
     Active Substance: LATANOPROSTENE BUNOD
     Dosage: 1 DROP IN BOTH EYES ONCE DAILY
     Route: 047
     Dates: start: 202109
  3. ARTIFICIAL TEARS [Concomitant]
     Active Substance: GLYCERIN\HYPROMELLOSES\POLYETHYLENE GLYCOL 400
     Indication: Product used for unknown indication
     Dosage: AS NEEDED
     Route: 047
     Dates: start: 202109

REACTIONS (3)
  - Intraocular pressure increased [Unknown]
  - Instillation site discomfort [Unknown]
  - Instillation site pain [Recovering/Resolving]

NARRATIVE: CASE EVENT DATE: 20210101
